FAERS Safety Report 9820341 (Version 1)
Quarter: 2013Q4

REPORT INFORMATION
  Report Type: Spontaneous
  Country: ES (occurrence: None)
  Receive Date: 20131025
  Receipt Date: 20131025
  Transmission Date: 20140711
  Serious: Yes (Other)
  Sender: FDA-Public Use
  Company Number: 2013-01468

PATIENT
  Age: 22 Year
  Sex: Male

DRUGS (1)
  1. METFORMIN [Suspect]
     Indication: SUICIDE ATTEMPT

REACTIONS (1)
  - Lactic acidosis [None]
